FAERS Safety Report 6818982-7 (Version None)
Quarter: 2010Q3

REPORT INFORMATION
  Report Type: 
  Country: None (occurrence: None)
  Receive Date: 20100701
  Receipt Date: 20100615
  Transmission Date: 20110219
  Serious: Yes (Hospitalization)
  Sender: FDA-Public Use
  Company Number: B0662484A

PATIENT
  Age: 66 Year
  Sex: Male

DRUGS (3)
  1. PAROXETINE HCL [Suspect]
     Indication: MAJOR DEPRESSION
     Dosage: 40 MG / PER DAY / ORAL
     Route: 048
     Dates: start: 20070724, end: 20070812
  2. CLOMIPRAMINE HCL [Suspect]
     Dosage: 150 MG / PER DAY /
     Dates: start: 20070724, end: 20070812
  3. SULPIRIDE [Concomitant]

REACTIONS (10)
  - ANAEMIA [None]
  - DELUSION [None]
  - DEPRESSION [None]
  - DRUG INEFFECTIVE [None]
  - HALLUCINATIONS, MIXED [None]
  - HYPOMANIA [None]
  - SEROTONIN SYNDROME [None]
  - STUPOR [None]
  - SUICIDE ATTEMPT [None]
  - TONGUE BITING [None]
